FAERS Safety Report 7809088-9 (Version None)
Quarter: 2011Q4

REPORT INFORMATION
  Report Type: 
  Country: None (occurrence: None)
  Receive Date: 20111012
  Receipt Date: 20110929
  Transmission Date: 20120403
  Serious: Yes (Hospitalization, Other)
  Sender: FDA-Public Use
  Company Number: JP-ELI_LILLY_AND_COMPANY-JP201106003595

PATIENT
  Age: 82 Year
  Sex: Female

DRUGS (2)
  1. FORTEO [Suspect]
     Dosage: UNK
     Dates: start: 20110701, end: 20110701
  2. FORTEO [Suspect]
     Dosage: UNK
     Route: 058
     Dates: start: 20110527, end: 20110601

REACTIONS (3)
  - CARDIAC FAILURE [None]
  - DECREASED APPETITE [None]
  - CEREBRAL INFARCTION [None]
